FAERS Safety Report 4452505-5 (Version None)
Quarter: 2004Q3

REPORT INFORMATION
  Report Type: 
  Country: None (occurrence: None)
  Receive Date: 20040916
  Receipt Date: 20040906
  Transmission Date: 20050211
  Serious: Yes (Other)
  Sender: FDA-Public Use
  Company Number: 2004232384IE

PATIENT
  Age: 85 Year
  Sex: Male

DRUGS (2)
  1. XALATAN [Suspect]
     Dosage: OPHTHALMIC
     Route: 047
     Dates: start: 20010101, end: 20040902
  2. AZOPT [Concomitant]

REACTIONS (1)
  - MACULAR OEDEMA [None]
